FAERS Safety Report 10224717 (Version 1)
Quarter: 2014Q2

REPORT INFORMATION
  Report Type: Spontaneous
  Country: US (occurrence: US)
  Receive Date: 20140609
  Receipt Date: 20140609
  Transmission Date: 20141212
  Serious: Yes (Other)
  Sender: FDA-Public Use
  Company Number: US-GILEAD-2014-0104459

PATIENT
  Age: 66 Year
  Sex: Female
  Weight: 74.7 kg

DRUGS (3)
  1. SOVALDI [Suspect]
     Indication: HEPATITIS C
     Dosage: 400 MG, QD
     Route: 048
     Dates: start: 20140404
  2. SIMEPREVIR [Suspect]
     Indication: HEPATITIS C
     Dosage: 150 MG, QD
     Route: 048
     Dates: start: 20140404
  3. COUMADIN                           /00014802/ [Interacting]
     Indication: DEEP VEIN THROMBOSIS
     Dosage: ^EXCEED^ 20 MG A DAY
     Route: 065
     Dates: start: 20140411

REACTIONS (5)
  - Deep vein thrombosis [Unknown]
  - Drug resistance [Unknown]
  - Anticoagulation drug level below therapeutic [Unknown]
  - Drug interaction [Unknown]
  - Off label use [Not Recovered/Not Resolved]
